FAERS Safety Report 5244694-X (Version None)
Quarter: 2007Q1

REPORT INFORMATION
  Report Type: 
  Country: None (occurrence: None)
  Receive Date: 20070222
  Receipt Date: 20070213
  Transmission Date: 20070707
  Serious: Yes (Death)
  Sender: FDA-Public Use
  Company Number: FR-MERCK-0702USA03536

PATIENT
  Age: 46 Year
  Sex: Female

DRUGS (4)
  1. MINTEZOL [Suspect]
     Indication: STRONGYLOIDIASIS
     Route: 065
     Dates: start: 20000101
  2. PREDNISONE [Suspect]
     Indication: LYMPHOMA
     Route: 065
     Dates: start: 20000701
  3. INTERFERON (UNSPECIFIED) [Concomitant]
     Indication: LYMPHOMA
     Route: 065
     Dates: start: 20000701
  4. [THERAPY UNSPECIFIED] [Concomitant]
     Indication: LYMPHOMA
     Route: 065
     Dates: start: 20000701

REACTIONS (1)
  - DRUG INEFFECTIVE [None]
